FAERS Safety Report 4618092-3 (Version None)
Quarter: 2005Q1

REPORT INFORMATION
  Report Type: 
  Country: None (occurrence: None)
  Receive Date: 20050322
  Receipt Date: 20050309
  Transmission Date: 20050727
  Serious: Yes (Hospitalization, Other)
  Sender: FDA-Public Use
  Company Number: 2005037999

PATIENT
  Age: 74 Year
  Sex: Male
  Weight: 95.2554 kg

DRUGS (14)
  1. CELEBREX [Suspect]
     Indication: OSTEOARTHRITIS
     Dosage: 200 MG (100 MG, 2 IN 1 D), ORAL
     Route: 048
     Dates: end: 20050219
  2. PRAVASTATIN SODIUM [Concomitant]
  3. IRBESARTAN [Concomitant]
  4. AMLODIPINE BESYLATE [Concomitant]
  5. ATENOLOL [Concomitant]
  6. ALBUTEROL SULFATE HFA [Concomitant]
  7. LORATADINE [Concomitant]
  8. TRIAMCINOLONE ACETONIDE [Concomitant]
  9. FINASTERIDE [Concomitant]
  10. HYDROCHLOROTHIAZIDE [Concomitant]
  11. EZETIMIBE (EZETIMIBE) [Concomitant]
  12. LANSOPRAZOLE [Concomitant]
  13. PAROXETINE HCL [Concomitant]
  14. SERETIDE MITE (FLUTICASONE PROPIONATE, SALMETEROL XINAFOATE) [Concomitant]

REACTIONS (6)
  - ARTHRALGIA [None]
  - CONDITION AGGRAVATED [None]
  - MEMORY IMPAIRMENT [None]
  - OSTEOARTHRITIS [None]
  - SPEECH DISORDER [None]
  - TRANSIENT ISCHAEMIC ATTACK [None]
